FAERS Safety Report 21720212 (Version 1)
Quarter: 2022Q4

REPORT INFORMATION
  Report Type: Spontaneous
  Country: US (occurrence: US)
  Receive Date: 20221213
  Receipt Date: 20221213
  Transmission Date: 20230112
  Serious: No
  Sender: FDA-Public Use
  Company Number: US-Axsome Therapeutics, Inc.-AXS202211-001178

PATIENT
  Age: 22 Year
  Sex: Female

DRUGS (8)
  1. AUVELITY [Suspect]
     Active Substance: BUPROPION HYDROCHLORIDE\DEXTROMETHORPHAN HYDROBROMIDE
     Indication: Product used for unknown indication
     Route: 065
     Dates: start: 202211, end: 202211
  2. Vibra [Concomitant]
  3. MODAFINIL [Concomitant]
     Active Substance: MODAFINIL
  4. LORAZEPAM [Concomitant]
     Active Substance: LORAZEPAM
  5. NIKKI [Concomitant]
     Active Substance: DROSPIRENONE\ETHINYL ESTRADIOL
     Indication: Contraception
  6. DOXYCYCLINE [Concomitant]
     Active Substance: DOXYCYCLINE
     Indication: Rosacea
  7. IVERMECTIN [Concomitant]
     Active Substance: IVERMECTIN
     Indication: Rosacea
  8. ELIDEL [Concomitant]
     Active Substance: PIMECROLIMUS
     Indication: Rosacea

REACTIONS (3)
  - Oropharyngeal discomfort [Recovered/Resolved]
  - Throat irritation [Recovered/Resolved]
  - Hypersensitivity [Recovered/Resolved]

NARRATIVE: CASE EVENT DATE: 20221101
